FAERS Safety Report 5518960-4 (Version None)
Quarter: 2007Q4

REPORT INFORMATION
  Report Type: 
  Country: None (occurrence: None)
  Receive Date: 20071114
  Receipt Date: 20071114
  Transmission Date: 20080405
  Serious: Yes (Death)
  Sender: FDA-Public Use
  Company Number: None

PATIENT
  Age: 62 Year
  Sex: Female

DRUGS (15)
  1. BACTRIM [Suspect]
     Indication: PNEUMOCYSTIS JIROVECI PNEUMONIA
     Dosage: 250MG Q8H IV
     Route: 042
     Dates: start: 20060907, end: 20060917
  2. SOLU-CORTEF [Concomitant]
  3. DIFLUCAN [Concomitant]
  4. IMMUNE GLOBULIN INTRAVENOUS (HUMAN) [Concomitant]
  5. INSULIN [Concomitant]
  6. ATROVENT [Concomitant]
  7. SYNTHROID [Concomitant]
  8. PROTONIX [Concomitant]
  9. AVELOX [Concomitant]
  10. CEFEPIME [Concomitant]
  11. MEDROL [Concomitant]
  12. FLORINEF [Concomitant]
  13. FENTANYL [Concomitant]
  14. FLAGYL [Concomitant]
  15. AMBIEN [Concomitant]

REACTIONS (7)
  - ANAEMIA [None]
  - CARDIAC FAILURE CONGESTIVE [None]
  - GENERAL PHYSICAL HEALTH DETERIORATION [None]
  - NOSOCOMIAL INFECTION [None]
  - RESPIRATORY FAILURE [None]
  - SEPSIS [None]
  - THROMBOCYTOPENIA [None]
